FAERS Safety Report 20421303 (Version 1)
Quarter: 2022Q1

REPORT INFORMATION
  Report Type: Spontaneous
  Country: US (occurrence: None)
  Receive Date: 20220203
  Receipt Date: 20220203
  Transmission Date: 20220423
  Serious: Yes (Hospitalization)
  Sender: FDA-Public Use
  Company Number: None

PATIENT
  Age: 64 Year
  Sex: Female
  Weight: 123 kg

DRUGS (1)
  1. BARICITINIB [Suspect]
     Active Substance: BARICITINIB
     Indication: COVID-19 pneumonia
     Dosage: 4 MG EVERY DAY PO
     Route: 048
     Dates: start: 20220105, end: 20220108

REACTIONS (7)
  - Cardiac failure [None]
  - Sputum culture positive [None]
  - Enterobacter infection [None]
  - Atrial fibrillation [None]
  - Pneumonia [None]
  - Infection [None]
  - Pyrexia [None]

NARRATIVE: CASE EVENT DATE: 20220108
